FAERS Safety Report 4347492-4 (Version None)
Quarter: 2004Q2

REPORT INFORMATION
  Report Type: 
  Country: None (occurrence: None)
  Receive Date: 20040422
  Receipt Date: 20040405
  Transmission Date: 20050107
  Serious: Yes (Hospitalization)
  Sender: FDA-Public Use
  Company Number: USA040463783

PATIENT
  Age: 69 Year
  Sex: Male
  Weight: 109 kg

DRUGS (9)
  1. XIGRIS [Suspect]
     Indication: SEPSIS
     Dosage: 24 UG/KG/HR
     Dates: start: 20040301, end: 20040305
  2. VANCOMYCIN [Concomitant]
  3. DOPAMINE HCL [Concomitant]
  4. TPN [Concomitant]
  5. DIFLUCAN [Concomitant]
  6. CORDARONE [Concomitant]
  7. LEVAQUIN [Concomitant]
  8. PRIMAXIN [Concomitant]
  9. PREDNISONE [Concomitant]

REACTIONS (2)
  - DISEASE RECURRENCE [None]
  - SEPSIS [None]
